FAERS Safety Report 6153513-9 (Version None)
Quarter: 2009Q2

REPORT INFORMATION
  Report Type: 
  Country: None (occurrence: None)
  Receive Date: 20090413
  Receipt Date: 20090408
  Transmission Date: 20091009
  Serious: Yes (Life-Threatening)
  Sender: FDA-Public Use
  Company Number: PHHY2009JP13510

PATIENT
  Sex: Female
  Weight: 44 kg

DRUGS (5)
  1. DIOVAN [Suspect]
     Indication: HYPERTENSION
     Dosage: 80 MG, QD
     Dates: start: 20080124, end: 20080422
  2. PARIET [Concomitant]
     Dosage: 20 MG
     Route: 048
     Dates: start: 20080122, end: 20080422
  3. PARIET [Concomitant]
     Dosage: 10 MG
     Route: 048
  4. PARIET [Concomitant]
     Dosage: 10 MG
     Route: 048
  5. OMEPRAL [Concomitant]
     Dosage: 20 MG
     Route: 048
     Dates: start: 20080303, end: 20080308

REACTIONS (6)
  - CARDIAC PACEMAKER INSERTION [None]
  - FALL [None]
  - SICK SINUS SYNDROME [None]
  - SUBDURAL HAEMATOMA [None]
  - SUBDURAL HAEMATOMA EVACUATION [None]
  - VENTRICULAR TACHYCARDIA [None]
